FAERS Safety Report 6748168-6 (Version None)
Quarter: 2010Q2

REPORT INFORMATION
  Report Type: 
  Country: None (occurrence: None)
  Receive Date: 20100531
  Receipt Date: 20100527
  Transmission Date: 20101027
  Serious: Yes (Other)
  Sender: FDA-Public Use
  Company Number: US-BRISTOL-MYERS SQUIBB COMPANY-15124001

PATIENT
  Age: 82 Year
  Sex: Female

DRUGS (1)
  1. COUMADIN [Suspect]

REACTIONS (1)
  - ATRIAL FIBRILLATION [None]
